FAERS Safety Report 11770666 (Version 1)
Quarter: 2015Q4

REPORT INFORMATION
  Report Type: Report from Study
  Country: US (occurrence: US)
  Receive Date: 20151123
  Receipt Date: 20151123
  Transmission Date: 20160304
  Serious: Yes (Hospitalization)
  Sender: FDA-Public Use
  Company Number: US-JAZZ-2015-US-019990

PATIENT
  Age: 52 Year
  Sex: Female

DRUGS (2)
  1. FAZACLO [Suspect]
     Active Substance: CLOZAPINE
     Dosage: 500 MG, QD
  2. CLOZAPINE USP, ODT [Suspect]
     Active Substance: CLOZAPINE

REACTIONS (2)
  - Cardiac arrest [Not Recovered/Not Resolved]
  - Chronic obstructive pulmonary disease [Not Recovered/Not Resolved]

NARRATIVE: CASE EVENT DATE: 20151113
